FAERS Safety Report 10022688 (Version 2)
Quarter: 2014Q1

REPORT INFORMATION
  Report Type: Spontaneous
  Country: BR (occurrence: BR)
  Receive Date: 20140319
  Receipt Date: 20140325
  Transmission Date: 20141002
  Serious: Yes (Other)
  Sender: FDA-Public Use
  Company Number: BR-PFIZER INC-2014077371

PATIENT
  Age: 77 Year
  Sex: Female
  Weight: 64 kg

DRUGS (5)
  1. OLMETEC [Suspect]
     Dosage: 40 MG, 1X/DAY
  2. LIPITOR [Suspect]
     Indication: BLOOD CHOLESTEROL
     Dosage: 80 MG, 1X/DAY
  3. ALDACTONE [Suspect]
     Dosage: 25 MG, 1X/DAY
     Dates: start: 201310
  4. GLIFAGE XR [Concomitant]
     Dosage: 750
  5. OMEPRAZOLE [Concomitant]

REACTIONS (6)
  - Eye pain [Unknown]
  - Wound [Unknown]
  - Eye disorder [Not Recovered/Not Resolved]
  - Memory impairment [Not Recovered/Not Resolved]
  - Headache [Unknown]
  - Retching [Unknown]
